FAERS Safety Report 5312350-5 (Version None)
Quarter: 2007Q2

REPORT INFORMATION
  Report Type: 
  Country: None (occurrence: None)
  Receive Date: 20070430
  Receipt Date: 20061031
  Transmission Date: 20071010
  Serious: No
  Sender: FDA-Public Use
  Company Number: 2006UW21126

PATIENT
  Age: 43 Year
  Sex: Female
  Weight: 70.3 kg

DRUGS (2)
  1. NEXIUM [Suspect]
     Indication: REFLUX OESOPHAGITIS
     Route: 048
     Dates: start: 20030101
  2. ALLEGRA [Concomitant]

REACTIONS (3)
  - ACCIDENTAL OVERDOSE [None]
  - HEADACHE [None]
  - MEDICATION ERROR [None]
